FAERS Safety Report 9219955 (Version 1)
Quarter: 2013Q2

REPORT INFORMATION
  Report Type: Spontaneous
  Country: DE (occurrence: JP)
  Receive Date: 20130409
  Receipt Date: 20130409
  Transmission Date: 20140414
  Serious: Yes (Other)
  Sender: FDA-Public Use
  Company Number: JP-FRI-1000043465

PATIENT
  Age: 88 Year
  Sex: Female

DRUGS (13)
  1. MEMANTINE [Suspect]
     Indication: DEMENTIA ALZHEIMER^S TYPE
     Dosage: 5 MG
     Route: 048
     Dates: start: 20130125, end: 20130204
  2. MEMANTINE [Suspect]
     Dosage: 10 MG
     Route: 048
     Dates: start: 20130205, end: 20130228
  3. MEMANTINE [Suspect]
     Dosage: 15 MG
     Route: 048
     Dates: start: 20130301, end: 20130305
  4. MEMANTINE [Suspect]
     Indication: DEMENTIA ALZHEIMER^S TYPE
     Dosage: 5 MG
     Route: 048
     Dates: start: 20130315
  5. NORVASC [Concomitant]
     Dosage: 5 MG
  6. SENNAL [Concomitant]
     Indication: CONSTIPATION
     Dosage: 2 DF
     Route: 048
     Dates: start: 201006
  7. MAGLAX [Concomitant]
     Indication: CONSTIPATION
     Dosage: 18 DF
     Route: 048
     Dates: start: 201006
  8. CRESTOR [Concomitant]
     Indication: HYPERLIPIDAEMIA
     Dosage: 1 DF
     Route: 048
     Dates: start: 201108
  9. PLETAAL [Concomitant]
     Indication: SICK SINUS SYNDROME
     Dosage: 4 DF
     Route: 048
     Dates: start: 201006
  10. ISOPIT [Concomitant]
     Indication: MYOCARDIAL ISCHAEMIA
     Dosage: 1 DF
     Dates: start: 201109
  11. LASIX [Concomitant]
     Indication: HYPERTENSION
     Dosage: 20 MG
     Route: 048
     Dates: start: 201210
  12. LASIX [Concomitant]
     Indication: CARDIAC FAILURE
  13. REZALTAS [Concomitant]
     Indication: HYPERTENSION
     Dosage: 1 DF
     Route: 048
     Dates: start: 20110305

REACTIONS (3)
  - Hypertension [Recovering/Resolving]
  - Cardiac failure [Recovered/Resolved]
  - Ventricular extrasystoles [Recovered/Resolved]
